FAERS Safety Report 15060772 (Version 5)
Quarter: 2019Q1

REPORT INFORMATION
  Report Type: Spontaneous
  Country: US (occurrence: US)
  Receive Date: 20180625
  Receipt Date: 20190215
  Transmission Date: 20190417
  Serious: Yes (Life-Threatening, Other)
  Sender: FDA-Public Use
  Company Number: US-BAUSCH-BL-2018-017529

PATIENT
  Age: 69 Year
  Sex: Female

DRUGS (9)
  1. INSULIN [Concomitant]
     Active Substance: INSULIN NOS
     Indication: HYPERKALAEMIA
  2. ATROPINE. [Suspect]
     Active Substance: ATROPINE
     Indication: CARDIAC ARREST
     Route: 065
  3. DOPAMINE [Suspect]
     Active Substance: DOPAMINE\DOPAMINE HYDROCHLORIDE
     Indication: CARDIAC ARREST
     Route: 065
  4. ISOPROTERENOL. [Suspect]
     Active Substance: ISOPROTERENOL
     Indication: CARDIAC ARREST
     Route: 065
  5. GLUCOSE [Concomitant]
     Active Substance: DEXTROSE
     Indication: HYPERKALAEMIA
  6. EPINEPHRINE. [Suspect]
     Active Substance: EPINEPHRINE
     Indication: CARDIAC ARREST
     Route: 065
  7. MAGNESIUM [Suspect]
     Active Substance: MAGNESIUM
     Indication: CARDIAC ARREST
     Route: 065
  8. SODIUM HYDROGEN CARBONATE [Concomitant]
     Active Substance: SODIUM BICARBONATE
     Indication: HYPERKALAEMIA
  9. CALCIUM [Suspect]
     Active Substance: CALCIUM
     Indication: CARDIAC ARREST
     Route: 065

REACTIONS (1)
  - Drug ineffective [Unknown]
